FAERS Safety Report 24341399 (Version 3)
Quarter: 2024Q4

REPORT INFORMATION
  Report Type: Report from Study
  Country: US (occurrence: US)
  Receive Date: 20240920
  Receipt Date: 20241007
  Transmission Date: 20250115
  Serious: Yes (Life-Threatening, Hospitalization, Other)
  Sender: ARGENX BVBA
  Company Number: US-ARGENX-2024-ARGX-US007810

PATIENT

DRUGS (1)
  1. EFGARTIGIMOD ALFA-FCAB [Suspect]
     Active Substance: EFGARTIGIMOD ALFA-FCAB
     Indication: Product used for unknown indication
     Dosage: UNK
     Route: 042
     Dates: end: 20240910

REACTIONS (11)
  - Pneumothorax [Unknown]
  - Small cell lung cancer [Unknown]
  - Chills [Unknown]
  - Back injury [Unknown]
  - Hypokinesia [Unknown]
  - Asthenia [Unknown]
  - Solar lentigo [Unknown]
  - Vomiting [Unknown]
  - Fatigue [Unknown]
  - COVID-19 [Unknown]
  - Somnolence [Unknown]

NARRATIVE: CASE EVENT DATE: 20240911
